FAERS Safety Report 4978225-6 (Version None)
Quarter: 2006Q2

REPORT INFORMATION
  Report Type: 
  Country: None (occurrence: None)
  Receive Date: 20060417
  Receipt Date: 20050124
  Transmission Date: 20061013
  Serious: Yes (Hospitalization)
  Sender: FDA-Public Use
  Company Number: 2004120400

PATIENT
  Age: 82 Year
  Sex: Female
  Weight: 54.4316 kg

DRUGS (7)
  1. LISTERINE MOUTHWASH ADVANCED ARCTIC MINT (MENTHOL, METHYL SALICYLATE, [Suspect]
     Indication: DENTAL DISORDER PROPHYLAXIS
     Dosage: 4 TBSP QD TO BID, ORAL TOPICAL
     Route: 061
     Dates: start: 20041102
  2. METOPROLOL SUCCINATE [Concomitant]
  3. ALENDRONATE SODIUM [Concomitant]
  4. TELMISARTAN (TELMISARTAN) [Concomitant]
  5. MAGNESIUM CHLORIDE ANHYDROUS (MAGNESIUM CHLORIDE ANHYDROUS) [Concomitant]
  6. FELODIPINE [Concomitant]
  7. GLUCOSE OXIDASE/LACTOFERRIN/LACTOPEROXIDASE/LYSOZYME (GLUCOSE OXIDASE, [Concomitant]

REACTIONS (2)
  - ORAL DISCOMFORT [None]
  - PNEUMONIA [None]
